FAERS Safety Report 16706231 (Version 2)
Quarter: 2019Q3

REPORT INFORMATION
  Report Type: Report from Study
  Country: NL (occurrence: NL)
  Receive Date: 20190815
  Receipt Date: 20190920
  Transmission Date: 20191004
  Serious: Yes (Other)
  Sender: FDA-Public Use
  Company Number: NL-EMD SERONO-9089518

PATIENT
  Age: 42 Year
  Sex: Female

DRUGS (2)
  1. MAVENCLAD [Suspect]
     Active Substance: CLADRIBINE
     Dosage: FIRST YEAR SECOND WEEK (WEEK 5) THERAPY: TOOK 8 TIMES 10 MILLIGRAMS DOSE TOTALLY.
     Route: 048
     Dates: start: 20181129
  2. MAVENCLAD [Suspect]
     Active Substance: CLADRIBINE
     Indication: RELAPSING-REMITTING MULTIPLE SCLEROSIS
     Dosage: FIRST YEAR FIRST WEEK THERAPY: TOOK 9 TIMES 10 MILLIGRAMS DOSE TOTALLY.
     Route: 048
     Dates: start: 20181029

REACTIONS (8)
  - Weight increased [Unknown]
  - Menstruation delayed [Recovered/Resolved]
  - Pertussis [Recovering/Resolving]
  - Headache [Recovered/Resolved]
  - Uhthoff^s phenomenon [Recovered/Resolved]
  - Menorrhagia [Unknown]
  - Dermatitis [Unknown]
  - Lymphocyte count decreased [Unknown]

NARRATIVE: CASE EVENT DATE: 201811
